FAERS Safety Report 18348189 (Version 5)
Quarter: 2020Q4

REPORT INFORMATION
  Report Type: Spontaneous
  Country: AR (occurrence: AR)
  Receive Date: 20201006
  Receipt Date: 20201116
  Transmission Date: 20210114
  Serious: Yes (Hospitalization, Other)
  Sender: FDA-Public Use
  Company Number: AR-AMGEN-ARGSP2020159871

PATIENT
  Age: 68 Year
  Sex: Female

DRUGS (4)
  1. ARTRAIT [METHOTREXATE SODIUM] [Concomitant]
     Dosage: 15 MILLIGRAM, QWK
     Dates: start: 201711
  2. METILPRES [Concomitant]
     Active Substance: PREDNISONE
     Dosage: 5 MILLIGRAM, QD
     Dates: start: 201711
  3. ENBREL [Suspect]
     Active Substance: ETANERCEPT
     Indication: RHEUMATOID ARTHRITIS
     Dosage: 50 MILLIGRAM, QWK (1 DOSE PER WEEK)
     Route: 065
     Dates: start: 20181001, end: 20200912
  4. FOLIC ACID. [Concomitant]
     Active Substance: FOLIC ACID
     Dosage: 5 MILLIGRAM, 2 TIMES/WK
     Dates: start: 201711

REACTIONS (10)
  - Peripheral swelling [Unknown]
  - COVID-19 [Not Recovered/Not Resolved]
  - Flatulence [Not Recovered/Not Resolved]
  - Arthropathy [Unknown]
  - Diabetes mellitus [Unknown]
  - Pain in extremity [Unknown]
  - Pneumonia [Unknown]
  - Feeling abnormal [Not Recovered/Not Resolved]
  - Pain [Unknown]
  - Inflammation [Unknown]

NARRATIVE: CASE EVENT DATE: 202009
